FAERS Safety Report 5118428-3 (Version None)
Quarter: 2006Q4

REPORT INFORMATION
  Report Type: 
  Country: None (occurrence: None)
  Receive Date: 20061002
  Receipt Date: 20060131
  Transmission Date: 20070319
  Serious: Yes (Other)
  Sender: FDA-Public Use
  Company Number: US-BAYER-200610598BWH

PATIENT
  Age: 56 Year
  Sex: Female

DRUGS (3)
  1. SORAFENIB [Suspect]
     Indication: METASTATIC RENAL CELL CARCINOMA
     Dosage: TOTAL DAILY DOSE: 800 MG  UNIT DOSE: 200 MG
     Route: 048
     Dates: start: 20051123
  2. PAXIL [Concomitant]
  3. BLOOD PRESSURE PILLS NOS [Concomitant]

REACTIONS (7)
  - COUGH [None]
  - DYSPNOEA [None]
  - GINGIVAL PAIN [None]
  - GLOSSODYNIA [None]
  - PAIN IN EXTREMITY [None]
  - PRURITUS [None]
  - RENAL CELL CARCINOMA STAGE UNSPECIFIED [None]
